FAERS Safety Report 19978801 (Version 1)
Quarter: 2021Q4

REPORT INFORMATION
  Report Type: Spontaneous
  Country: US (occurrence: US)
  Receive Date: 20211021
  Receipt Date: 20211021
  Transmission Date: 20220303
  Serious: Yes (Disabling, Other)
  Sender: FDA-Public Use
  Company Number: None

PATIENT
  Age: 43 Year
  Sex: Female
  Weight: 72.9 kg

DRUGS (1)
  1. OXYCODONE [Suspect]
     Active Substance: OXYCODONE
     Indication: Pain
     Dosage: ?          QUANTITY:120 TABLET(S);
     Route: 048

REACTIONS (12)
  - Migraine [None]
  - Hypertension [None]
  - Nausea [None]
  - Product substitution issue [None]
  - Analgesic drug level decreased [None]
  - Paraesthesia [None]
  - Feeding disorder [None]
  - Insomnia [None]
  - Sinus disorder [None]
  - Weight decreased [None]
  - Depression [None]
  - Lethargy [None]

NARRATIVE: CASE EVENT DATE: 20210924
